FAERS Safety Report 17084069 (Version 1)
Quarter: 2019Q4

REPORT INFORMATION
  Report Type: Spontaneous
  Country: FI (occurrence: FI)
  Receive Date: 20191127
  Receipt Date: 20191127
  Transmission Date: 20200122
  Serious: Yes (Hospitalization)
  Sender: FDA-Public Use
  Company Number: FI-MYLANLABS-2019M1115644

PATIENT
  Age: 6 Year
  Sex: Male

DRUGS (2)
  1. LIDOCAINE. [Suspect]
     Active Substance: LIDOCAINE
     Indication: LOCAL ANAESTHESIA
     Dosage: 10 MILLILITER, TOTAL
     Dates: start: 20190618, end: 20190618
  2. LIVOPAN [Suspect]
     Active Substance: NITROUS OXIDE\OXYGEN
     Indication: SEDATIVE THERAPY
     Dosage: UNK
     Route: 055
     Dates: start: 20190618, end: 20190618

REACTIONS (3)
  - Seizure [Recovered/Resolved]
  - Oxygen saturation decreased [Recovered/Resolved]
  - Depressed level of consciousness [Recovered/Resolved]

NARRATIVE: CASE EVENT DATE: 20190618
